FAERS Safety Report 11468351 (Version 2)
Quarter: 2015Q3

REPORT INFORMATION
  Report Type: Spontaneous
  Country: US (occurrence: US)
  Receive Date: 20150903
  Receipt Date: 20150903
  Transmission Date: 20151125
  Serious: No
  Sender: FDA-Public Use
  Company Number: US-ELI_LILLY_AND_COMPANY-US201108004160

PATIENT
  Age: 33 Year
  Sex: Female

DRUGS (2)
  1. ETHANOL [Concomitant]
     Active Substance: ALCOHOL
  2. CYMBALTA [Suspect]
     Active Substance: DULOXETINE HYDROCHLORIDE
     Indication: SOCIAL PHOBIA
     Dosage: 60 MG, QD

REACTIONS (4)
  - Drug dose omission [Unknown]
  - Off label use [Not Recovered/Not Resolved]
  - Diarrhoea [Unknown]
  - Somnolence [Unknown]
